FAERS Safety Report 17717939 (Version 3)
Quarter: 2020Q2

REPORT INFORMATION
  Report Type: Report from Study
  Country: US (occurrence: US)
  Receive Date: 20200428
  Receipt Date: 20200623
  Transmission Date: 20200714
  Serious: Yes (Other)
  Sender: FDA-Public Use
  Company Number: US-GLAXOSMITHKLINE-US2020TSO009308

PATIENT
  Age: 48 Year
  Sex: Female
  Weight: 113 kg

DRUGS (3)
  1. NIRAPARIB [Suspect]
     Active Substance: NIRAPARIB
     Indication: OVARIAN CANCER
     Dosage: 200 MG, QD AT BEDTIME WITH AND WITHOUT FOOD
     Route: 048
     Dates: start: 20200109
  2. NIRAPARIB [Suspect]
     Active Substance: NIRAPARIB
     Dosage: 100 MG Q PM, DAILY
  3. NIRAPARIB [Suspect]
     Active Substance: NIRAPARIB
     Dosage: 100 MG Q PM, DAILY

REACTIONS (19)
  - Constipation [Unknown]
  - Laparoscopic surgery [Unknown]
  - Intestinal obstruction [Unknown]
  - Hernia [Unknown]
  - Cough [Unknown]
  - Oropharyngeal pain [Unknown]
  - Underdose [Unknown]
  - Fatigue [Unknown]
  - Nasopharyngitis [Unknown]
  - Pain in extremity [Unknown]
  - Back pain [Unknown]
  - Anxiety [Unknown]
  - Bronchitis [Unknown]
  - Nausea [Unknown]
  - Chest discomfort [Unknown]
  - Neuropathy peripheral [Unknown]
  - Carbohydrate antigen 125 increased [Not Recovered/Not Resolved]
  - Musculoskeletal stiffness [Unknown]
  - Social problem [Unknown]

NARRATIVE: CASE EVENT DATE: 20200407
